FAERS Safety Report 15327102 (Version 2)
Quarter: 2018Q3

REPORT INFORMATION
  Report Type: Not Available
  Country: US (occurrence: US)
  Receive Date: 20180828
  Receipt Date: 20180918
  Transmission Date: 20181010
  Serious: Yes (Hospitalization)
  Sender: FDA-Public Use
  Company Number: US-NEUROCRINE BIOSCIENCES INC.-2018NBI02522

PATIENT
  Age: 61 Year
  Sex: Female

DRUGS (9)
  1. INGREZZA [Suspect]
     Active Substance: VALBENAZINE
     Route: 048
     Dates: start: 20170825, end: 20180726
  2. INGREZZA [Suspect]
     Active Substance: VALBENAZINE
     Dosage: AT BEDTIME
     Route: 048
     Dates: end: 2018
  3. CYMBALTA [Concomitant]
     Active Substance: DULOXETINE HYDROCHLORIDE
  4. INGREZZA [Suspect]
     Active Substance: VALBENAZINE
     Indication: TARDIVE DYSKINESIA
     Route: 048
     Dates: start: 20170818, end: 20170824
  5. TRILEPTAL [Concomitant]
     Active Substance: OXCARBAZEPINE
  6. BUPROPION. [Concomitant]
     Active Substance: BUPROPION
  7. LITHIUM. [Concomitant]
     Active Substance: LITHIUM
  8. NALTREXONE [Concomitant]
     Active Substance: NALTREXONE
  9. TRAZODONE [Concomitant]
     Active Substance: TRAZODONE HYDROCHLORIDE

REACTIONS (1)
  - Sedation [Recovered/Resolved]

NARRATIVE: CASE EVENT DATE: 201807
